FAERS Safety Report 23029840 (Version 2)
Quarter: 2023Q4

REPORT INFORMATION
  Report Type: Spontaneous
  Country: HR (occurrence: HR)
  Receive Date: 20231004
  Receipt Date: 20231108
  Transmission Date: 20240109
  Serious: Yes (Other)
  Sender: FDA-Public Use
  Company Number: HR-BAXTER-2023BAX032289

PATIENT
  Age: 63 Year
  Sex: Male

DRUGS (29)
  1. DOXORUBICIN [Suspect]
     Active Substance: DOXORUBICIN
     Indication: Light chain disease
     Dosage: UNK, 1 TIME AS A PART OF KD+PACE REGIMEN (START DATE: MAR-2023), SOLUTION FOR INFUSION
     Route: 065
  2. DOXORUBICIN [Suspect]
     Active Substance: DOXORUBICIN
     Indication: Plasma cell myeloma
     Dosage: UNK, 3 TIMES AS A PART OF VAD+ IXAZOMIB REGIMEN (FROM JUN-2023 TO AUG-2023), SOLUTION FOR INFUSION
     Route: 065
  3. CYCLOPHOSPHAMIDE [Suspect]
     Active Substance: CYCLOPHOSPHAMIDE
     Indication: Light chain disease
     Dosage: UNK, 5 TIMES AS A PART OF VCD REGIMEN (FROM MAR-2022 TO MAY-2022)
     Route: 065
  4. CYCLOPHOSPHAMIDE [Suspect]
     Active Substance: CYCLOPHOSPHAMIDE
     Indication: Plasma cell myeloma
     Dosage: UNK, 1 TIME AS A PART OF KD+PACE REGIMEN (START DATE: MAR-2023)
     Route: 065
  5. VELCADE [Suspect]
     Active Substance: BORTEZOMIB
     Indication: Light chain disease
     Dosage: UNK, 5 TIMES AS A PART OF VCD REGIMEN (FROM MAR-2022 TO MAY-2022)
     Route: 065
  6. VELCADE [Suspect]
     Active Substance: BORTEZOMIB
     Indication: Plasma cell myeloma
  7. DEXAMETHASONE [Suspect]
     Active Substance: DEXAMETHASONE
     Indication: Light chain disease
     Dosage: UNK, 5 TIMES AS A PART OF VCD REGIMEN (FROM MAR-2022 TO MAY-2022)
     Route: 065
  8. DEXAMETHASONE [Suspect]
     Active Substance: DEXAMETHASONE
     Indication: Plasma cell myeloma
     Dosage: UNK, 5 TIMES AS A PART OF DRD REGIMEN (FROM AUG-2022 TO FEB-2023)
     Route: 065
  9. DEXAMETHASONE [Suspect]
     Active Substance: DEXAMETHASONE
     Dosage: UNK, 1 TIME AS A PART OF KD+PACE REGIMEN (START DATE: MAR-2023)
     Route: 065
  10. DEXAMETHASONE [Suspect]
     Active Substance: DEXAMETHASONE
     Dosage: UNK, 3 TIMES, AS A PART OF KD+MP REGIMEN (FROM APR-2023 TO JUN-2023)
     Route: 065
  11. DEXAMETHASONE [Suspect]
     Active Substance: DEXAMETHASONE
     Dosage: UNK, 3 TIMES AS A PART OF VAD+ IXAZOMIB REGIMEN (FROM JUN-2023 TO AUG-2023)
     Route: 065
  12. DARZALEX [Suspect]
     Active Substance: DARATUMUMAB
     Indication: Light chain disease
     Dosage: UNK, 5 TIMES AS A PART OF DRD REGIMEN (FROM AUG-2022 TO FEB-2023)
     Route: 065
  13. DARZALEX [Suspect]
     Active Substance: DARATUMUMAB
     Indication: Plasma cell myeloma
  14. LENALIDOMIDE [Suspect]
     Active Substance: LENALIDOMIDE
     Indication: Light chain disease
     Dosage: UNK, 5 TIMES AS A PART OF DRD REGIMEN (FROM AUG-2022 TO FEB-2023)
     Route: 065
  15. LENALIDOMIDE [Suspect]
     Active Substance: LENALIDOMIDE
     Indication: Plasma cell myeloma
  16. CARFILZOMIB [Suspect]
     Active Substance: CARFILZOMIB
     Indication: Light chain disease
     Dosage: UNK, 1 TIME AS A PART OF KD+PACE REGIMEN (START DATE: MAR-2023)
     Route: 065
  17. CARFILZOMIB [Suspect]
     Active Substance: CARFILZOMIB
     Indication: Plasma cell myeloma
     Dosage: UNK, 3 TIMES, AS A PART OF KD+MP REGIMEN (FROM APR-2023 TO JUN-2023)
     Route: 065
  18. CISPLATIN [Suspect]
     Active Substance: CISPLATIN
     Indication: Light chain disease
     Dosage: UNK, 1 TIME AS A PART OF KD+PACE REGIMEN (START DATE: MAR-2023)
     Route: 065
  19. CISPLATIN [Suspect]
     Active Substance: CISPLATIN
     Indication: Plasma cell myeloma
  20. ETOPOSIDE [Suspect]
     Active Substance: ETOPOSIDE
     Indication: Light chain disease
     Dosage: UNK, 1 TIME AS A PART OF KD+PACE REGIMEN (START DATE: MAR-2023)
     Route: 065
  21. ETOPOSIDE [Suspect]
     Active Substance: ETOPOSIDE
     Indication: Plasma cell myeloma
  22. MELPHALAN [Suspect]
     Active Substance: MELPHALAN
     Indication: Light chain disease
     Dosage: UNK, 3 TIMES, AS A PART OF KD+MP REGIMEN (FROM APR-2023 TO JUN-2023)
     Route: 065
  23. MELPHALAN [Suspect]
     Active Substance: MELPHALAN
     Indication: Plasma cell myeloma
  24. PREDNISONE [Suspect]
     Active Substance: PREDNISONE
     Indication: Light chain disease
     Dosage: UNK, 3 TIMES, AS A PART OF KD+MP REGIMEN (FROM APR-2023 TO JUN-2023)
     Route: 065
  25. PREDNISONE [Suspect]
     Active Substance: PREDNISONE
     Indication: Plasma cell myeloma
  26. VINCRISTINE [Suspect]
     Active Substance: VINCRISTINE
     Indication: Light chain disease
     Dosage: UNK, 3 TIMES AS A PART OF VAD+ IXAZOMIB REGIMEN (FROM JUN-2023 TO AUG-2023)
     Route: 065
  27. VINCRISTINE [Suspect]
     Active Substance: VINCRISTINE
     Indication: Plasma cell myeloma
  28. IXAZOMIB [Suspect]
     Active Substance: IXAZOMIB
     Indication: Light chain disease
     Dosage: UNK, 3 TIMES AS A PART OF VAD+ IXAZOMIB REGIMEN (FROM JUN-2023 TO AUG-2023)
     Route: 065
  29. IXAZOMIB [Suspect]
     Active Substance: IXAZOMIB
     Indication: Plasma cell myeloma

REACTIONS (4)
  - Light chain disease [Unknown]
  - Therapy partial responder [Unknown]
  - Plasma cell myeloma [Unknown]
  - Febrile neutropenia [Unknown]
